FAERS Safety Report 8850219 (Version 1)
Quarter: 2012Q4

REPORT INFORMATION
  Report Type: 
  Country: US (occurrence: US)
  Receive Date: 20121019
  Receipt Date: 20121019
  Transmission Date: 20130627
  Serious: No
  Sender: FDA-Public Use
  Company Number: US-PFIZER INC-2012261463

PATIENT
  Age: 56 Year
  Sex: Male
  Weight: 104 kg

DRUGS (4)
  1. CHANTIX [Suspect]
     Indication: SMOKING CESSATION THERAPY
     Dosage: UNK
     Dates: start: 20121008
  2. CHANTIX [Suspect]
     Dosage: 1 mg, 2x/day
     Dates: end: 20121017
  3. LORAZEPAM [Concomitant]
     Dosage: UNK
  4. TRAZODONE [Concomitant]
     Dosage: 150 mg, daily

REACTIONS (3)
  - Expired drug administered [Unknown]
  - Insomnia [Not Recovered/Not Resolved]
  - Nightmare [Not Recovered/Not Resolved]
